FAERS Safety Report 18282881 (Version 1)
Quarter: 2020Q3

REPORT INFORMATION
  Report Type: Spontaneous
  Country: CN (occurrence: CN)
  Receive Date: 20200918
  Receipt Date: 20200918
  Transmission Date: 20201103
  Serious: Yes (Other)
  Sender: FDA-Public Use
  Company Number: CN-PFIZER INC-2020359743

PATIENT
  Age: 34 Year
  Sex: Female

DRUGS (1)
  1. SOLU?MEDROL [Suspect]
     Active Substance: METHYLPREDNISOLONE SODIUM SUCCINATE
     Indication: THERAPEUTIC PROCEDURE
     Dosage: 1000 MG, 1X/DAY
     Route: 041
     Dates: start: 20200818, end: 20200820

REACTIONS (2)
  - Pruritus [Recovering/Resolving]
  - Monoplegia [Recovering/Resolving]

NARRATIVE: CASE EVENT DATE: 20200818
